FAERS Safety Report 19785370 (Version 15)
Quarter: 2024Q1

REPORT INFORMATION
  Report Type: Spontaneous
  Country: IN (occurrence: IN)
  Receive Date: 20210903
  Receipt Date: 20240314
  Transmission Date: 20240410
  Serious: Yes (Other)
  Sender: FDA-Public Use
  Company Number: IN-PFIZER INC-2019340109

PATIENT
  Age: 40 Year
  Sex: Male

DRUGS (12)
  1. PALBOCICLIB [Suspect]
     Active Substance: PALBOCICLIB
     Indication: Breast cancer metastatic
     Dosage: 125 MG, 1X/DAY
     Route: 048
     Dates: start: 201906
  2. PALBOCICLIB [Suspect]
     Active Substance: PALBOCICLIB
     Indication: Breast cancer male
     Dosage: 125 MG, CYCLIC (D1-D21 FOLLOWED BY 1 WEEK OFF)
     Dates: start: 20190703
  3. PALBOCICLIB [Suspect]
     Active Substance: PALBOCICLIB
     Dosage: 125 MG, CYCLIC (125 MG OD D1-D21 FOLLOWED BY 1 WEEK)
     Route: 048
     Dates: start: 20190805
  4. PALBOCICLIB [Suspect]
     Active Substance: PALBOCICLIB
     Dosage: 125 MG, 1X/DAY
     Route: 048
     Dates: start: 20200420
  5. PALBOCICLIB [Suspect]
     Active Substance: PALBOCICLIB
     Dosage: UNK, ALTERNATE DAY
  6. PALBOCICLIB [Suspect]
     Active Substance: PALBOCICLIB
     Dosage: DAILY ONE TABLET D1-D21 FOLLOWED BY 7 DAYS OFF
  7. LETROZOLE [Concomitant]
     Active Substance: LETROZOLE
     Dosage: 2.5 MG, 1X/DAY (0-1-0)
     Dates: start: 201906
  8. CALCIUM CARBONATE\CHOLECALCIFEROL [Concomitant]
     Active Substance: CALCIUM CARBONATE\CHOLECALCIFEROL
     Dosage: 500 MG, 1X/DAY (0-0-1)
  9. ZOLEDRONIC ACID [Concomitant]
     Active Substance: ZOLEDRONIC ACID
  10. MONTELUKAST SODIUM [Concomitant]
     Active Substance: MONTELUKAST SODIUM
  11. LEUPROLIDE ACETATE [Concomitant]
     Active Substance: ISOPROPYL ALCOHOL\LEUPROLIDE ACETATE
     Dosage: UNK, EVERY 3 MONTHS
     Dates: start: 201906
  12. LEUPROLIDE ACETATE [Concomitant]
     Active Substance: ISOPROPYL ALCOHOL\LEUPROLIDE ACETATE
     Dosage: 22.5 MG (QUARTERLY OR FOR EVERY 3 MONTHS)
     Dates: start: 20190603

REACTIONS (17)
  - Cholecystitis [Unknown]
  - Oropharyngeal pain [Unknown]
  - Weight increased [Unknown]
  - Pyrexia [Unknown]
  - Blood pressure increased [Not Recovered/Not Resolved]
  - Alanine aminotransferase increased [Recovering/Resolving]
  - Aspartate aminotransferase increased [Not Recovered/Not Resolved]
  - Haemoglobin decreased [Unknown]
  - Neoplasm progression [Unknown]
  - Cough [Recovered/Resolved]
  - Blood cholesterol abnormal [Unknown]
  - Neutrophil percentage decreased [Unknown]
  - Platelet count decreased [Unknown]
  - Blood creatinine increased [Unknown]
  - Tinea infection [Unknown]
  - Heart rate increased [Unknown]
  - Intentional product misuse [Unknown]

NARRATIVE: CASE EVENT DATE: 20201126
